FAERS Safety Report 16915500 (Version 2)
Quarter: 2019Q4

REPORT INFORMATION
  Report Type: Spontaneous
  Country: US (occurrence: US)
  Receive Date: 20191014
  Receipt Date: 20191111
  Transmission Date: 20200122
  Serious: No
  Sender: FDA-Public Use
  Company Number: US-CELGENEUS-USA-20191001908

PATIENT
  Sex: Female
  Weight: 59.93 kg

DRUGS (1)
  1. REVLIMID [Suspect]
     Active Substance: LENALIDOMIDE
     Indication: PLASMA CELL MYELOMA
     Dosage: 5 MILLIGRAM
     Route: 048
     Dates: start: 20190222

REACTIONS (4)
  - Weight decreased [Unknown]
  - Vision blurred [Unknown]
  - Diarrhoea [Unknown]
  - Hunger [Unknown]

NARRATIVE: CASE EVENT DATE: 2019
